FAERS Safety Report 11124904 (Version 9)
Quarter: 2018Q2

REPORT INFORMATION
  Report Type: Spontaneous
  Country: US (occurrence: US)
  Receive Date: 20150520
  Receipt Date: 20180626
  Transmission Date: 20180711
  Serious: Yes (Death, Life-Threatening, Hospitalization, Other)
  Sender: FDA-Public Use
  Company Number: US-PFIZER INC-2015165400

PATIENT
  Age: 75 Year
  Sex: Male
  Weight: 108 kg

DRUGS (25)
  1. TYLENOL [Concomitant]
     Active Substance: ACETAMINOPHEN
     Dosage: 325 MG, UNK
  2. VANCOCIN [Concomitant]
     Active Substance: VANCOMYCIN HYDROCHLORIDE
     Dosage: 1 GRAM/200 ML IN D5W
  3. MYLANTA [Concomitant]
     Active Substance: ALUMINUM HYDROXIDE\DIMETHICONE\MAGNESIUM HYDROXIDE
     Dosage: 200-200-20 MG/5 ML
  4. REVATIO [Suspect]
     Active Substance: SILDENAFIL CITRATE
     Indication: PULMONARY ARTERIAL HYPERTENSION
     Dosage: 20 MG, 3X/DAY
     Route: 048
     Dates: start: 2012
  5. LASIX [Concomitant]
     Active Substance: FUROSEMIDE
     Dosage: UNK
  6. FERROUS SULFATE. [Concomitant]
     Active Substance: FERROUS SULFATE
     Dosage: 325 MG, UNK
  7. WARFARIN [Concomitant]
     Active Substance: WARFARIN
     Dosage: UNK
  8. COLACE [Concomitant]
     Active Substance: DOCUSATE SODIUM
     Dosage: 100 MG, UNK
  9. GLYCOLAX [Concomitant]
     Active Substance: POLYETHYLENE GLYCOL 3350
     Dosage: 17 GRAM PACKET
  10. LEXAPRO [Concomitant]
     Active Substance: ESCITALOPRAM OXALATE
     Dosage: 5 MG, UNK
  11. HUMALOG [Concomitant]
     Active Substance: INSULIN LISPRO
     Dosage: 100 IU/ML, UNK
  12. DEXTROSE IN WATER [Concomitant]
     Active Substance: DEXTROSE\WATER
     Dosage: DEXTROSE 50% IN WATER SOLUTION
  13. ASPRIN [Concomitant]
     Active Substance: ASPIRIN
     Dosage: 81 MG, UNK
  14. PROTONIX [Concomitant]
     Active Substance: PANTOPRAZOLE SODIUM
     Indication: GASTRIC DISORDER
     Dosage: UNK
  15. MAALOX ANTACID [Concomitant]
     Active Substance: ALUMINUM HYDROXIDE\DIMETHICONE\MAGNESIUM HYDROXIDE
     Dosage: 200-200-20 MG/5 ML
  16. ATIVAN [Concomitant]
     Active Substance: LORAZEPAM
     Dosage: 0.5 MG, UNK
  17. SPIRIVA [Concomitant]
     Active Substance: TIOTROPIUM BROMIDE MONOHYDRATE
     Dosage: 18 UG, UNK
     Route: 055
  18. REVATIO [Suspect]
     Active Substance: SILDENAFIL CITRATE
     Dosage: 20 MG, 3X/DAY
     Route: 048
     Dates: end: 20180124
  19. COREG [Concomitant]
     Active Substance: CARVEDILOL
     Dosage: UNK
  20. MIRALAX [Concomitant]
     Active Substance: POLYETHYLENE GLYCOL 3350
     Dosage: 17 GRAM PACKET
  21. REVATIO [Suspect]
     Active Substance: SILDENAFIL CITRATE
     Dosage: 20 MG, 3X/DAY
     Route: 048
     Dates: start: 2013
  22. NORVASC [Concomitant]
     Active Substance: AMLODIPINE BESYLATE
     Dosage: UNK
  23. ARANESP [Concomitant]
     Active Substance: DARBEPOETIN ALFA
     Dosage: 40 MCG/0.4 ML, SYRINGE
  24. INSTA-GLUCOSE [Concomitant]
     Active Substance: DEXTROSE
     Dosage: UNK
  25. MAG AL PLUS XS [Concomitant]
     Dosage: 200-200-20 MG/5 ML

REACTIONS (26)
  - Ventricular fibrillation [Recovered/Resolved]
  - Dizziness [Unknown]
  - Musculoskeletal pain [Unknown]
  - Haemoglobin decreased [Unknown]
  - Pain [Unknown]
  - Acute respiratory failure [Unknown]
  - Hypercapnia [Unknown]
  - Complication associated with device [Recovered/Resolved]
  - Myocardial infarction [Unknown]
  - Pleural calcification [Unknown]
  - Oesophageal disorder [Unknown]
  - Pulseless electrical activity [Recovered/Resolved]
  - Arrhythmia supraventricular [Unknown]
  - Chest discomfort [Unknown]
  - Pulmonary embolism [Unknown]
  - Oedema [Unknown]
  - Staphylococcal infection [Fatal]
  - Hypoxia [Unknown]
  - Dyspnoea [Unknown]
  - Gastritis erosive [Unknown]
  - Sepsis [Fatal]
  - Cardiac arrest [Unknown]
  - Chest pain [Unknown]
  - Haemorrhage [Unknown]
  - Pleural effusion [Unknown]
  - Lung disorder [Unknown]

NARRATIVE: CASE EVENT DATE: 20150424
